FAERS Safety Report 5918433-0 (Version None)
Quarter: 2008Q4

REPORT INFORMATION
  Report Type: 
  Country: None (occurrence: None)
  Receive Date: 20081015
  Receipt Date: 20081010
  Transmission Date: 20090506
  Serious: Yes (Other)
  Sender: FDA-Public Use
  Company Number: US-RANBAXY-2008RR-18578

PATIENT
  Age: 55 Year
  Sex: Male

DRUGS (2)
  1. FLUCONAZOLE [Suspect]
     Dosage: UNK
     Dates: start: 19900101, end: 19940101
  2. AMPHOTERICIN B [Concomitant]
     Dosage: UNK

REACTIONS (1)
  - DRUG RESISTANCE [None]
